FAERS Safety Report 6335075-6 (Version None)
Quarter: 2009Q3

REPORT INFORMATION
  Report Type: 
  Country: None (occurrence: None)
  Receive Date: 20090831
  Receipt Date: 20090820
  Transmission Date: 20100115
  Serious: Yes (Other)
  Sender: FDA-Public Use
  Company Number: B0582106A

PATIENT
  Sex: Female

DRUGS (4)
  1. SERETIDE [Suspect]
     Indication: ASTHMA
     Dosage: 2PUFF TWICE PER DAY
     Route: 065
     Dates: start: 20090401
  2. MINDIAB [Concomitant]
     Indication: DIABETES MELLITUS
  3. LANSOPRAZOLE [Concomitant]
  4. IMOVANE [Concomitant]

REACTIONS (4)
  - ARTHRALGIA [None]
  - HYPOGLYCAEMIA [None]
  - OEDEMA PERIPHERAL [None]
  - PAIN [None]
